FAERS Safety Report 13371073 (Version 1)
Quarter: 2017Q1

REPORT INFORMATION
  Report Type: Spontaneous
  Country: DK (occurrence: DK)
  Receive Date: 20170324
  Receipt Date: 20170324
  Transmission Date: 20170429
  Serious: Yes (Hospitalization, Other)
  Sender: FDA-Public Use
  Company Number: DK-ALLERGAN-1711196US

PATIENT
  Sex: Female

DRUGS (3)
  1. CITALOPRAM HYDROBROMIDE - BP [Suspect]
     Active Substance: CITALOPRAM HYDROBROMIDE
     Indication: PRODUCT USED FOR UNKNOWN INDICATION
     Route: 065
  2. LEXOTAN [Concomitant]
     Active Substance: BROMAZEPAM
     Indication: NEURALGIA
  3. LEXOTAN [Concomitant]
     Active Substance: BROMAZEPAM
     Indication: MYALGIA

REACTIONS (2)
  - Coronary artery thrombosis [Unknown]
  - Coronary arterial stent insertion [Unknown]
